FAERS Safety Report 19145416 (Version 1)
Quarter: 2021Q2

REPORT INFORMATION
  Report Type: Spontaneous
  Country: US (occurrence: US)
  Receive Date: 20210416
  Receipt Date: 20210416
  Transmission Date: 20210717
  Serious: No
  Sender: FDA-Public Use
  Company Number: US-LEO PHARMA-335736

PATIENT
  Sex: Male

DRUGS (4)
  1. CALCIPOTRIENE CREAM 0.005% [Suspect]
     Active Substance: CALCIPOTRIENE
     Indication: SKIN EXFOLIATION
     Dates: start: 20210328, end: 20210331
  2. FLUOROURACIL 5% [Suspect]
     Active Substance: FLUOROURACIL
     Indication: SKIN EXFOLIATION
     Dates: start: 20210328, end: 20210331
  3. FLUOROURACIL 5% [Suspect]
     Active Substance: FLUOROURACIL
     Indication: RASH MACULAR
     Dates: start: 20210328, end: 20210331
  4. CALCIPOTRIENE CREAM 0.005% [Suspect]
     Active Substance: CALCIPOTRIENE
     Indication: RASH MACULAR
     Dates: start: 20210328, end: 20210331

REACTIONS (5)
  - Wrong technique in product usage process [Unknown]
  - Product administered at inappropriate site [Unknown]
  - Pain of skin [Not Recovered/Not Resolved]
  - Skin burning sensation [Recovered/Resolved]
  - Product use in unapproved indication [Unknown]
